FAERS Safety Report 7580587-0 (Version None)
Quarter: 2011Q2

REPORT INFORMATION
  Report Type: 
  Country: None (occurrence: None)
  Receive Date: 20110629
  Receipt Date: 20110620
  Transmission Date: 20111010
  Serious: Yes (Other)
  Sender: FDA-Public Use
  Company Number: B0701366A

PATIENT
  Sex: Female

DRUGS (1)
  1. CLOBETASOL PROPIONATE [Suspect]
     Indication: SKIN DISORDER
     Route: 061
     Dates: start: 20110212, end: 20110212

REACTIONS (15)
  - PIGMENTATION DISORDER [None]
  - TOXICITY TO VARIOUS AGENTS [None]
  - DRUG ADMINISTRATION ERROR [None]
  - HYPERSENSITIVITY [None]
  - DYSPNOEA [None]
  - SKIN ATROPHY [None]
  - MADAROSIS [None]
  - PANIC ATTACK [None]
  - MUSCLE TWITCHING [None]
  - LOCAL SWELLING [None]
  - ANXIETY [None]
  - DYSGEUSIA [None]
  - CHEST DISCOMFORT [None]
  - BURNING SENSATION [None]
  - FEELING ABNORMAL [None]
